FAERS Safety Report 5636094-5 (Version None)
Quarter: 2008Q1

REPORT INFORMATION
  Report Type: 
  Country: None (occurrence: None)
  Receive Date: 20080225
  Receipt Date: 20080212
  Transmission Date: 20080703
  Serious: Yes (Hospitalization, Disabling, Other)
  Sender: FDA-Public Use
  Company Number: US-JNJFOC-20071102537

PATIENT
  Sex: Male
  Weight: 80.74 kg

DRUGS (2)
  1. DURAGESIC-100 [Suspect]
     Indication: MYOFASCIAL PAIN SYNDROME
     Route: 062
  2. DURAGESIC-100 [Suspect]
     Indication: PAIN
     Route: 062

REACTIONS (3)
  - CAROTID ARTERY DISSECTION [None]
  - CEREBRAL INFARCTION [None]
  - CEREBROVASCULAR ACCIDENT [None]
